FAERS Safety Report 8026564 (Version 3)
Quarter: 2012Q4

REPORT INFORMATION
  Report Type: 
  Country: US (occurrence: US)
  Receive Date: 20110708
  Receipt Date: 20121101
  Transmission Date: 20130627
  Serious: Yes (Other)
  Sender: FDA-Public Use
  Company Number: US-ROCHE-787468

PATIENT
  Age: 22 Year
  Sex: Female

DRUGS (4)
  1. ACCUTANE [Suspect]
     Indication: ACNE
     Dosage: Dose: 50 mg 2 per oral daily
     Route: 048
     Dates: start: 1994, end: 1995
  2. ACCUTANE [Suspect]
     Route: 048
     Dates: start: 2001, end: 2002
  3. ACCUTANE [Suspect]
     Dosage: Dose: 30 mg 2 per oral daily
     Route: 048
     Dates: start: 2009, end: 2010
  4. SOTRET [Suspect]
     Indication: PRODUCT USED FOR UNKNOWN INDICATION
     Route: 048

REACTIONS (9)
  - Inflammatory bowel disease [Unknown]
  - Irritable bowel syndrome [Unknown]
  - Injury [Unknown]
  - Renal disorder [Unknown]
  - Thyroid disorder [Unknown]
  - Immune system disorder [Unknown]
  - Impaired gastric emptying [Unknown]
  - Visual impairment [Unknown]
  - Haemorrhoids [Unknown]
